FAERS Safety Report 7267912-5 (Version None)
Quarter: 2011Q1

REPORT INFORMATION
  Report Type: 
  Country: None (occurrence: None)
  Receive Date: 20110201
  Receipt Date: 20110126
  Transmission Date: 20110831
  Serious: Yes (Death)
  Sender: FDA-Public Use
  Company Number: CN-BRISTOL-MYERS SQUIBB COMPANY-15469349

PATIENT
  Age: 58 Year
  Sex: Male
  Weight: 63 kg

DRUGS (3)
  1. CISPLATIN [Suspect]
     Indication: GASTROOESOPHAGEAL CANCER
     Dosage: RECENT INF:25NOV10 DISCONTINUED ON 25NOV10 ON DAY 1 OF CYCLE
     Route: 042
     Dates: start: 20101125, end: 20101125
  2. CETUXIMAB [Suspect]
     Indication: GASTROOESOPHAGEAL CANCER
     Dosage: FORMULATION CETUXIMAB 5MG/ML IV INFUSION, 4TH ADMINISTRATION 25NOV10-ONG RECENT INF:18DEC10
     Route: 042
     Dates: start: 20101125
  3. XELODA [Suspect]
     Indication: GASTROOESOPHAGEAL CANCER
     Dosage: ON DAY 1-15,TABS RECENT INF:25NOV10 DISCONTINUED ON 25NOV10
     Route: 048
     Dates: start: 20101125, end: 20101125

REACTIONS (1)
  - PULMONARY EMBOLISM [None]
